FAERS Safety Report 8785562 (Version 1)
Quarter: 2012Q4

REPORT INFORMATION
  Report Type: Spontaneous
  Country: US (occurrence: None)
  Receive Date: 20120907
  Receipt Date: 20120907
  Transmission Date: 20130627
  Serious: Yes (Hospitalization)
  Sender: FDA-Public Use
  Company Number: None

PATIENT
  Age: 59 Year
  Sex: Male
  Weight: 161.5 kg

DRUGS (1)
  1. WARFARIN [Suspect]
     Dates: start: 20120516

REACTIONS (2)
  - Transfusion [None]
  - Haemorrhage [None]
